FAERS Safety Report 6555984-2 (Version None)
Quarter: 2010Q1

REPORT INFORMATION
  Report Type: 
  Country: None (occurrence: None)
  Receive Date: 20100128
  Receipt Date: 20081202
  Transmission Date: 20100710
  Serious: No
  Sender: FDA-Public Use
  Company Number: US-TEVA-181884USA

PATIENT
  Sex: Female

DRUGS (5)
  1. COPAXONE [Suspect]
     Indication: MULTIPLE SCLEROSIS
     Route: 058
     Dates: start: 20050202
  2. JANUMET [Concomitant]
  3. BYETTA [Concomitant]
  4. FLUOXETINE [Concomitant]
  5. PROPRANOLOL [Concomitant]

REACTIONS (1)
  - VENTRICULAR TACHYCARDIA [None]
